FAERS Safety Report 24737191 (Version 2)
Quarter: 2024Q4

REPORT INFORMATION
  Report Type: Report from Study
  Country: ES (occurrence: ES)
  Receive Date: 20241216
  Receipt Date: 20241225
  Transmission Date: 20250115
  Serious: Yes (Other)
  Sender: ROCHE
  Company Number: ES-ROCHE-10000156724

PATIENT

DRUGS (5)
  1. BEVACIZUMAB [Suspect]
     Active Substance: BEVACIZUMAB
     Indication: Adenocarcinoma of colon
     Route: 065
  2. CETUXIMAB [Suspect]
     Active Substance: CETUXIMAB
     Indication: Adenocarcinoma of colon
     Route: 065
  3. PANITUMUMAB [Suspect]
     Active Substance: PANITUMUMAB
     Indication: Adenocarcinoma of colon
     Route: 065
  4. OXALIPLATIN [Suspect]
     Active Substance: OXALIPLATIN
     Indication: Adenocarcinoma of colon
     Route: 065
  5. FLUOROURACIL [Suspect]
     Active Substance: FLUOROURACIL
     Indication: Adenocarcinoma of colon
     Route: 065

REACTIONS (15)
  - Diarrhoea [Unknown]
  - Hypertension [Unknown]
  - Hypersensitivity [Unknown]
  - Neutropenia [Unknown]
  - Thrombosis [Unknown]
  - Asthenia [Unknown]
  - Mucosal inflammation [Unknown]
  - Hypersensitivity [Unknown]
  - Hypertension [Unknown]
  - Neurotoxicity [Unknown]
  - Fatigue [Unknown]
  - Neuropathy peripheral [Unknown]
  - Thrombocytopenia [Unknown]
  - Skin toxicity [Unknown]
  - Anaemia [Unknown]
